FAERS Safety Report 5973025-2 (Version None)
Quarter: 2008Q4

REPORT INFORMATION
  Report Type: 
  Country: None (occurrence: None)
  Receive Date: 20081126
  Receipt Date: 20081126
  Transmission Date: 20090506
  Serious: Yes (Life-Threatening)
  Sender: FDA-Public Use
  Company Number: None

PATIENT
  Age: 28 Year
  Weight: 111 kg

DRUGS (2)
  1. OPTIRAY 300 [Suspect]
     Indication: ABDOMINAL PAIN
     Dates: start: 20080915, end: 20080915
  2. OPTIRAY 300 [Suspect]
     Indication: SCAN WITH CONTRAST
     Dates: start: 20080915, end: 20080915

REACTIONS (1)
  - CYANOSIS [None]
